FAERS Safety Report 9178356 (Version 1)
Quarter: 2013Q1

REPORT INFORMATION
  Report Type: Report from Study
  Country: US (occurrence: US)
  Receive Date: 20130321
  Receipt Date: 20130321
  Transmission Date: 20140127
  Serious: Yes (Hospitalization)
  Sender: FDA-Public Use
  Company Number: US-ROCHE-1082682

PATIENT
  Age: 81 Year
  Sex: Female
  Weight: 83.99 kg

DRUGS (3)
  1. CAPECITABINE [Suspect]
     Indication: BREAST CANCER METASTATIC
     Route: 048
     Dates: start: 20120525, end: 20121103
  2. COREG [Concomitant]
     Dosage: 1 AND HALF TABLET
     Route: 048
     Dates: start: 201211
  3. LISINOPRIL [Concomitant]
     Route: 048
     Dates: start: 2003

REACTIONS (5)
  - Nausea [Recovering/Resolving]
  - Stress cardiomyopathy [Recovering/Resolving]
  - Ejection fraction decreased [Recovering/Resolving]
  - Dyspnoea [Recovering/Resolving]
  - Chest discomfort [Recovered/Resolved]
